FAERS Safety Report 4528926-9 (Version None)
Quarter: 2004Q4

REPORT INFORMATION
  Report Type: 
  Country: None (occurrence: None)
  Receive Date: 20041214
  Receipt Date: 20041202
  Transmission Date: 20050328
  Serious: Yes (Hospitalization)
  Sender: FDA-Public Use
  Company Number: 200410605BFR

PATIENT
  Age: 60 Year
  Sex: Female
  Weight: 130 kg

DRUGS (6)
  1. GLUCOR (ACARBOSE) [Suspect]
     Dosage: 150 MG, TOTAL DAILY, ORAL
     Route: 048
     Dates: start: 20040901
  2. DILTIAZEM [Suspect]
     Dosage: 300 MG, TOTAL DAILY, ORAL
     Route: 048
     Dates: start: 20020101
  3. EUPRESSYL (URAPIDIL) [Suspect]
     Dosage: 120 MG, TOTAL DAILY, ORAL
     Route: 048
     Dates: start: 20020101
  4. RAMIPRIL [Suspect]
     Dosage: 10 MG, TOTAL DAILY, ORAL
     Route: 048
     Dates: start: 20020101
  5. ZOLOFT [Suspect]
     Dosage: 50 MG, TOTAL DAILY, ORAL
     Route: 048
     Dates: start: 20020101
  6. SIMVASTATIN [Suspect]
     Dosage: 30 MG, TOTAL DAILY, ORAL
     Route: 048
     Dates: start: 20020101, end: 20041029

REACTIONS (3)
  - CYTOLYTIC HEPATITIS [None]
  - NECROSIS [None]
  - PANCREATITIS ACUTE [None]
